FAERS Safety Report 24377783 (Version 1)
Quarter: 2024Q3

REPORT INFORMATION
  Report Type: Spontaneous
  Country: ES (occurrence: ES)
  Receive Date: 20240930
  Receipt Date: 20240930
  Transmission Date: 20241016
  Serious: Yes (Life-Threatening, Hospitalization)
  Sender: JOHNSON AND JOHNSON
  Company Number: None

PATIENT
  Age: 57 Year
  Sex: Female
  Weight: 58.8 kg

DRUGS (5)
  1. TOPIRAMATE [Suspect]
     Active Substance: TOPIRAMATE
     Indication: Suicide attempt
     Dosage: UNKNOWN
     Route: 048
     Dates: start: 20240901, end: 20240901
  2. CLORAZEPATE DIPOTASSIUM [Suspect]
     Active Substance: CLORAZEPATE DIPOTASSIUM
     Indication: Suicide attempt
     Dosage: UNKNOWN
     Route: 048
     Dates: start: 20240901, end: 20240901
  3. DIPHENHYDRAMINE HYDROCHLORIDE [Suspect]
     Active Substance: DIPHENHYDRAMINE HYDROCHLORIDE
     Indication: Suicide attempt
     Dosage: UNKNOWN
     Route: 048
     Dates: start: 20240901, end: 20240901
  4. FLUOXETINE [Suspect]
     Active Substance: FLUOXETINE HYDROCHLORIDE
     Indication: Personality disorder
     Dosage: UNKNOWN
     Route: 048
     Dates: start: 20240901, end: 20240901
  5. QUETIAPINE [Suspect]
     Active Substance: QUETIAPINE
     Indication: Suicide attempt
     Dosage: 60X100MG
     Route: 048
     Dates: start: 20240901, end: 20240901

REACTIONS (1)
  - Depressed level of consciousness [Recovered/Resolved]

NARRATIVE: CASE EVENT DATE: 20240901
